FAERS Safety Report 14923531 (Version 1)
Quarter: 2018Q2

REPORT INFORMATION
  Report Type: Spontaneous
  Country: CA (occurrence: CA)
  Receive Date: 20180522
  Receipt Date: 20180522
  Transmission Date: 20180711
  Serious: Yes (Hospitalization, Other)
  Sender: FDA-Public Use
  Company Number: CA-PFIZER INC-2018200070

PATIENT
  Age: 49 Year
  Sex: Male

DRUGS (2)
  1. MORPHINE SULFATE. [Suspect]
     Active Substance: MORPHINE SULFATE
     Dosage: UNK
  2. MULTIVITAMINS /00116001/ [Concomitant]
     Active Substance: VITAMINS
     Dosage: UNK

REACTIONS (8)
  - Crohn^s disease [Unknown]
  - Diarrhoea [Unknown]
  - Abdominal pain [Unknown]
  - Dizziness [Unknown]
  - Fistula [Unknown]
  - Cellulitis [Unknown]
  - Fatigue [Unknown]
  - Weight decreased [Unknown]

NARRATIVE: CASE EVENT DATE: 201706
